FAERS Safety Report 7364864-4 (Version None)
Quarter: 2011Q1

REPORT INFORMATION
  Report Type: 
  Country: None (occurrence: None)
  Receive Date: 20110321
  Receipt Date: 20110310
  Transmission Date: 20110831
  Serious: Yes (Other)
  Sender: FDA-Public Use
  Company Number: BR-ASTRAZENECA-2011SE13705

PATIENT
  Age: 18 Year
  Sex: Female

DRUGS (2)
  1. SYMBICORT [Suspect]
     Indication: ASTHMA
     Route: 055
     Dates: end: 20101101
  2. SYMBICORT [Suspect]
     Dosage: 6/200 MCG UNKNOWN
     Route: 055
     Dates: start: 20101101

REACTIONS (4)
  - ORAL PAIN [None]
  - MOUTH ULCERATION [None]
  - ORAL CANDIDIASIS [None]
  - PHARYNGITIS [None]
